FAERS Safety Report 4685698-5 (Version None)
Quarter: 2005Q2

REPORT INFORMATION
  Report Type: 
  Country: None (occurrence: None)
  Receive Date: 20050608
  Receipt Date: 20050523
  Transmission Date: 20051028
  Serious: No
  Sender: FDA-Public Use
  Company Number: ZA-2005-009413

PATIENT
  Age: 66 Year
  Sex: Female

DRUGS (2)
  1. MIRENA [Suspect]
     Indication: PROPHYLAXIS
     Dosage: 20 UG/DAY, CONT, INTRA-UTERINE
     Route: 015
     Dates: start: 20010827, end: 20050527
  2. ESTROGENS [Concomitant]

REACTIONS (1)
  - UTERINE CANCER [None]
